FAERS Safety Report 6410035-5 (Version None)
Quarter: 2009Q4

REPORT INFORMATION
  Report Type: 
  Country: None (occurrence: None)
  Receive Date: 20091022
  Receipt Date: 20090909
  Transmission Date: 20100525
  Serious: No
  Sender: FDA-Public Use
  Company Number: US-BAYER-200932643NA

PATIENT
  Age: 26 Year
  Sex: Female
  Weight: 49 kg

DRUGS (3)
  1. YAZ [Suspect]
     Indication: PREMENSTRUAL SYNDROME
     Dates: start: 20090301, end: 20090501
  2. YAZ [Suspect]
     Dates: start: 20090901
  3. KLONOPIN [Concomitant]

REACTIONS (4)
  - BREAST TENDERNESS [None]
  - INCREASED APPETITE [None]
  - NAUSEA [None]
  - SOMNOLENCE [None]
